FAERS Safety Report 6510628-0 (Version None)
Quarter: 2009Q4

REPORT INFORMATION
  Report Type: 
  Country: None (occurrence: None)
  Receive Date: 20091222
  Receipt Date: 20090107
  Transmission Date: 20100525
  Serious: No
  Sender: FDA-Public Use
  Company Number: US-ASTRAZENECA-2009UW00518

PATIENT
  Age: 51 Year
  Sex: Male
  Weight: 95.3 kg

DRUGS (4)
  1. CRESTOR [Suspect]
     Indication: HIGH DENSITY LIPOPROTEIN DECREASED
     Dosage: UNKNOWN
     Route: 048
     Dates: start: 20061201
  2. WELLBUTRIN [Concomitant]
  3. FISH OIL [Concomitant]
  4. SUPPLEMENTS [Concomitant]

REACTIONS (1)
  - DEPRESSION [None]
